FAERS Safety Report 13060293 (Version 2)
Quarter: 2017Q1

REPORT INFORMATION
  Report Type: Spontaneous
  Country: US (occurrence: US)
  Receive Date: 20161223
  Receipt Date: 20170105
  Transmission Date: 20170428
  Serious: Yes (Other)
  Sender: FDA-Public Use
  Company Number: US-ASTRAZENECA-2016SF34110

PATIENT
  Age: 26487 Day
  Sex: Female
  Weight: 108.4 kg

DRUGS (1)
  1. BRILINTA [Suspect]
     Active Substance: TICAGRELOR
     Indication: MYOCARDIAL INFARCTION
     Dosage: 90 MILLIGRAM, ONE IN THE MORNING AND ONE AT NIGHT
     Route: 048
     Dates: start: 20160924

REACTIONS (4)
  - Chest pain [Recovered/Resolved]
  - Gastroenteritis viral [Unknown]
  - Stent malfunction [Recovered/Resolved]
  - Myocardial infarction [Unknown]

NARRATIVE: CASE EVENT DATE: 20160923
